FAERS Safety Report 4911514-X (Version None)
Quarter: 2006Q1

REPORT INFORMATION
  Report Type: 
  Country: None (occurrence: None)
  Receive Date: 20060214
  Receipt Date: 20051104
  Transmission Date: 20060701
  Serious: Yes (Hospitalization)
  Sender: FDA-Public Use
  Company Number: NZ-MERCK-0602NZL00004

PATIENT
  Sex: Male
  Weight: 105 kg

DRUGS (12)
  1. VIOXX [Suspect]
     Indication: OSTEOARTHRITIS
     Route: 048
     Dates: start: 20010201, end: 20010601
  2. VIOXX [Suspect]
     Route: 048
     Dates: start: 20010701, end: 20041001
  3. ACETAMINOPHEN [Concomitant]
     Route: 065
  4. DIHYDROCODEINE BITARTRATE [Concomitant]
     Route: 065
  5. QUINAPRIL HYDROCHLORIDE [Concomitant]
     Route: 065
  6. GEMFIBROZIL [Concomitant]
     Route: 065
  7. TRAMADOL HYDROCHLORIDE [Concomitant]
     Route: 065
  8. PREDNISONE [Concomitant]
     Route: 065
  9. METFORMIN [Concomitant]
     Route: 065
  10. METOPROLOL TARTRATE [Concomitant]
     Route: 065
  11. SIMVASTATIN [Concomitant]
     Route: 065
  12. NITROGLYCERIN [Concomitant]
     Route: 065

REACTIONS (2)
  - ANGINA UNSTABLE [None]
  - RADICULOPATHY [None]
